FAERS Safety Report 20878198 (Version 1)
Quarter: 2022Q2

REPORT INFORMATION
  Report Type: Spontaneous
  Country: US (occurrence: None)
  Receive Date: 20220525
  Receipt Date: 20220525
  Transmission Date: 20220721
  Serious: Yes (Disabling)
  Sender: FDA-Public Use
  Company Number: None

PATIENT
  Age: 75 Year
  Sex: Male
  Weight: 95.25 kg

DRUGS (10)
  1. DEVICE [Suspect]
     Active Substance: DEVICE
  2. NOVOLOG [Suspect]
     Active Substance: INSULIN ASPART
  3. BENAZEPRIL [Concomitant]
     Active Substance: BENAZEPRIL HYDROCHLORIDE
  4. METOPROLOL [Concomitant]
     Active Substance: METOPROLOL
  5. SIMVASTATIN [Concomitant]
     Active Substance: SIMVASTATIN
  6. NEFEDIPINE [Concomitant]
  7. TRAZODONE [Concomitant]
     Active Substance: TRAZODONE HYDROCHLORIDE
  8. ALEVE [Concomitant]
     Active Substance: NAPROXEN SODIUM
  9. VITAMINS [Concomitant]
     Active Substance: VITAMINS
  10. VITAMIN D [Concomitant]
     Active Substance: VITAMIN D NOS

REACTIONS (2)
  - Device computer issue [None]
  - Blood glucose decreased [None]
